FAERS Safety Report 21008181 (Version 1)
Quarter: 2022Q2

REPORT INFORMATION
  Report Type: Spontaneous
  Country: US (occurrence: US)
  Receive Date: 20220627
  Receipt Date: 20220627
  Transmission Date: 20220721
  Serious: Yes (Disabling)
  Sender: FDA-Public Use
  Company Number: US-NOVOPROD-930093

PATIENT
  Sex: Female

DRUGS (1)
  1. VICTOZA [Suspect]
     Active Substance: LIRAGLUTIDE
     Indication: Product used for unknown indication
     Dosage: 3 PEN PACK
     Route: 058

REACTIONS (3)
  - Disability [Unknown]
  - Ankle operation [Unknown]
  - Limb operation [Unknown]
